FAERS Safety Report 7423379-5 (Version None)
Quarter: 2011Q2

REPORT INFORMATION
  Report Type: 
  Country: None (occurrence: None)
  Receive Date: 20110419
  Receipt Date: 20110406
  Transmission Date: 20111010
  Serious: Yes (Hospitalization, Other)
  Sender: FDA-Public Use
  Company Number: PHHY2011DE29422

PATIENT
  Age: 60 Year
  Sex: Female
  Weight: 82 kg

DRUGS (8)
  1. CLINDA-SAAR [Suspect]
     Indication: INTERVERTEBRAL DISCITIS
     Dosage: 1 DF, TID
     Route: 042
     Dates: start: 20101023, end: 20101023
  2. DICLOFENAC [Suspect]
     Dosage: 1 DF
     Route: 048
     Dates: start: 20020101, end: 20101022
  3. CLINDA-SAAR [Suspect]
     Dosage: 1 DF, TID
     Route: 048
     Dates: start: 20101024, end: 20101108
  4. STAPHYLEX [Suspect]
     Indication: INTERVERTEBRAL DISCITIS
     Dosage: 4 DF, TID
     Route: 048
     Dates: start: 20101024, end: 20101108
  5. DOTAREM [Suspect]
     Dosage: 4748 MG
     Route: 042
     Dates: start: 20101022, end: 20101022
  6. CLINDA-SAAR [Suspect]
     Dosage: 1 DF, TID
     Route: 048
     Dates: start: 20101024, end: 20101108
  7. STAPHYLEX [Suspect]
     Dosage: 3 DF DAILY
     Route: 042
     Dates: start: 20101023, end: 20101023
  8. VOLTAREN [Suspect]
     Dosage: 1 DF, BID
     Route: 048
     Dates: start: 20101022

REACTIONS (7)
  - ASPARTATE AMINOTRANSFERASE INCREASED [None]
  - BLOOD CREATININE INCREASED [None]
  - ALANINE AMINOTRANSFERASE INCREASED [None]
  - BLOOD BILIRUBIN INCREASED [None]
  - HEPATITIS ACUTE [None]
  - RENAL FAILURE ACUTE [None]
  - BLOOD ALKALINE PHOSPHATASE INCREASED [None]
